FAERS Safety Report 10365002 (Version 1)
Quarter: 2014Q1

REPORT INFORMATION
  Report Type: Spontaneous
  Country: US (occurrence: None)
  Receive Date: 20140306
  Receipt Date: 20140306
  Transmission Date: 20141002
  Serious: No
  Sender: FDA-Public Use
  Company Number: 163-21880-13106401

PATIENT
  Age: 60 Year
  Sex: Male

DRUGS (10)
  1. REVLIMID [Suspect]
     Indication: PLASMA CELL MYELOMA
     Dosage: 10 MG, 21 IN 21 D, 21 IN 21, PO  09/13/2012 - 09/23/2013 THERAPY DATES  ?
     Route: 048
     Dates: start: 20120913, end: 20130923
  2. COUMADIN (WARFARIN SODIUM) [Concomitant]
  3. DEXAMETHASONE [Concomitant]
  4. DIOVAN [Concomitant]
  5. LYRICA (PREGABALIN) [Concomitant]
  6. OXYCODONE [Concomitant]
  7. VITAMIN B12 (CYANOCOBALAMIN) [Concomitant]
  8. VITAMIN D (ERGOCALCIFEROL) [Concomitant]
  9. FOLIC AICD [Concomitant]
  10. VALACYCLOVIR [Concomitant]

REACTIONS (2)
  - Arthralgia [None]
  - Plasma cell myeloma [None]
